FAERS Safety Report 19137780 (Version 1)
Quarter: 2021Q2

REPORT INFORMATION
  Report Type: Spontaneous
  Country: DE (occurrence: DE)
  Receive Date: 20210414
  Receipt Date: 20210414
  Transmission Date: 20210717
  Serious: Yes (Hospitalization)
  Sender: FDA-Public Use
  Company Number: DE-ASTRAZENECA-2021A265051

PATIENT
  Age: 76 Year
  Sex: Female

DRUGS (23)
  1. QUETIAPIN [Suspect]
     Active Substance: QUETIAPINE
     Dosage: 50 MG, 0?0?1?0, RETARD?TABLET
     Route: 065
  2. RAMIPRIL. [Concomitant]
     Active Substance: RAMIPRIL
     Dosage: 5 MG, 1?0?0?1, TABLET
  3. LEVOTHYROXINE SODIUM. [Concomitant]
     Active Substance: LEVOTHYROXINE SODIUM
     Dosage: 100 UG, 0.5?0?0?0, TABLET50UG/INHAL DAILY
  4. QUETIAPIN [Suspect]
     Active Substance: QUETIAPINE
     Dosage: 25 MG, 1?1?0?0, TABLET
     Route: 065
  5. RISPERIDON [Suspect]
     Active Substance: RISPERIDONE
     Dosage: 1 MG, 0?0?0?0.5, TABLETS0.5MG UNKNOWN
     Route: 065
  6. ASPIRIN. [Concomitant]
     Active Substance: ASPIRIN
     Dosage: 100 MG, 0?1?0?0, TABLET100.0MG UNKNOWN
  7. MOXONIDIN [Concomitant]
     Active Substance: MOXONIDINE
     Dosage: 0.3 MG, 1?0?0?0, TABLET
  8. TAVOR [Concomitant]
     Dosage: 1 MG, TABLET1.0MG UNKNOWN
     Route: 065
  9. LACTULOSE. [Concomitant]
     Active Substance: LACTULOSE
     Dosage: 10 ML, 1?0?1?0, SOLUTION
  10. QUETIAPIN [Concomitant]
     Active Substance: QUETIAPINE
     Dosage: 25 MG, NEEDS, TABLETS25.0MG INTERMITTENT
  11. LECICARBON E CO2 LAXANS [Concomitant]
     Dosage: DEMAND, SUPPOSITORIES, INTERMITTENT
     Route: 054
  12. EBRANTIL [Concomitant]
     Active Substance: URAPIDIL
     Dosage: 60 MG, 1?1?1?0, CAPSULES
  13. LACTULOSE. [Suspect]
     Active Substance: LACTULOSE
     Dosage: 10 ML, 1?0?1?0, SOLUTION
     Route: 065
  14. AMLODIPIN [Concomitant]
     Active Substance: AMLODIPINE BESYLATE
     Dosage: 5 MG, 0.5?0?0.5?0, TABLET
  15. MEMANTIN [Suspect]
     Active Substance: MEMANTINE
     Dosage: 20 MG, 1?0?0?0, TABLET
     Route: 065
  16. KALINOR [Concomitant]
     Dosage: 1?0?0?0, BRAUSETABLETTEN
  17. MAGNESIUM [Concomitant]
     Active Substance: MAGNESIUM
     Dosage: 1?0?1?0, BRAUSETABLETTEN
  18. ATORVASTATIN [Concomitant]
     Active Substance: ATORVASTATIN
     Dosage: 20 MG, 0?0?1?0, TABLET
  19. DECODERM TRI [Concomitant]
     Active Substance: FLUPREDNIDENE ACETATE\MICONAZOLE NITRATE
     Dosage: 1?0?1?0, CREAM
     Route: 061
  20. MOVICOL [Concomitant]
     Active Substance: POLYETHYLENE GLYCOL 3350\POTASSIUM CHLORIDE\SODIUM BICARBONATE\SODIUM CHLORIDE
     Dosage: REQUIREMENTS, BAGS/GRANULES
  21. LACTULOSE. [Concomitant]
     Active Substance: LACTULOSE
     Dosage: 20 ML, NEED, SOLUTION
  22. OMEPRAZOL [Concomitant]
     Active Substance: OMEPRAZOLE
     Dosage: 20 MG, 1?0?0?0, CAPSULES
  23. METAMIZOL [Concomitant]
     Active Substance: METAMIZOLE SODIUM
     Dosage: 500 MG, NEEDS, TABLETS500.0MG INTERMITTENT

REACTIONS (5)
  - Disturbance in attention [Unknown]
  - Somnolence [Unknown]
  - General physical health deterioration [Unknown]
  - Asthenia [Unknown]
  - Dehydration [Unknown]
